FAERS Safety Report 4570141-7 (Version None)
Quarter: 2005Q1

REPORT INFORMATION
  Report Type: 
  Country: None (occurrence: None)
  Receive Date: 20050131
  Receipt Date: 20050112
  Transmission Date: 20050727
  Serious: Yes (Death)
  Sender: FDA-Public Use
  Company Number: 1723

PATIENT
  Age: 78 Year
  Sex: Female

DRUGS (8)
  1. AVINZA [Suspect]
     Indication: BONE PAIN
     Dosage: 1120 MG BID PO
     Route: 048
     Dates: start: 20040601, end: 20041201
  2. AVINZA [Suspect]
     Indication: OSTEOMALACIA
     Dosage: 1120 MG BID PO
     Route: 048
     Dates: start: 20040601, end: 20041201
  3. ALENDRONATE SODIUM [Concomitant]
  4. CALCIUM GLUCONATE [Concomitant]
  5. CONJUGATED ESTROGENS [Concomitant]
  6. HYDROCODONE/ACETAMINOPHEN [Concomitant]
  7. VITAMIN D [Concomitant]
  8. ZOLPIDEM TARTRATE [Concomitant]

REACTIONS (3)
  - INTESTINAL ADHESION LYSIS [None]
  - POST PROCEDURAL COMPLICATION [None]
  - PULMONARY EMBOLISM [None]
